FAERS Safety Report 4440219-7 (Version None)
Quarter: 2004Q3

REPORT INFORMATION
  Report Type: 
  Country: None (occurrence: None)
  Receive Date: 20040903
  Receipt Date: 20040830
  Transmission Date: 20050211
  Serious: Yes (Death)
  Sender: FDA-Public Use
  Company Number: DE-BRISTOL-MYERS SQUIBB COMPANY-12686366

PATIENT
  Age: 69 Year
  Sex: Male

DRUGS (4)
  1. CARBOPLATIN [Suspect]
     Indication: NON-SMALL CELL LUNG CANCER
     Dosage: AUC 7.5;
  2. DOCETAXEL [Suspect]
     Indication: NON-SMALL CELL LUNG CANCER
     Dosage: GIVEN ON DAY 1
  3. AZATHIOPRINE [Suspect]
     Indication: MYASTHENIA GRAVIS
     Dosage: 150 MG/DIE (CUMULATIVE DOSE OF 69 GRAMS)
     Dates: start: 19991001, end: 20001201
  4. RADIATION THERAPY [Suspect]
     Indication: NON-SMALL CELL LUNG CANCER
     Dosage: 50.4 GY TO THE MEDIASTINUM, 45 GY TO THE SUPRACLAVICULAR REGIONS
     Dates: start: 19980301, end: 19980501

REACTIONS (5)
  - ACUTE MYELOID LEUKAEMIA [None]
  - INFECTION [None]
  - MYASTHENIA GRAVIS [None]
  - MYELODYSPLASTIC SYNDROME [None]
  - TREATMENT RELATED SECONDARY MALIGNANCY [None]
